FAERS Safety Report 8576205-5 (Version None)
Quarter: 2012Q3

REPORT INFORMATION
  Report Type: 
  Country: None (occurrence: None)
  Receive Date: 20120807
  Receipt Date: 20120802
  Transmission Date: 20120928
  Serious: Yes (Hospitalization)
  Sender: FDA-Public Use
  Company Number: AT-ABBOTT-12P-009-0952978-00

PATIENT
  Sex: Male
  Weight: 50 kg

DRUGS (16)
  1. TROSPIUM CHLORIDE [Concomitant]
     Indication: PRODUCT USED FOR UNKNOWN INDICATION
     Dosage: 1-0-1
  2. ZEMPLAR [Suspect]
     Dosage: 3 X 4 CAPS/WEEK (MONDAY, WEDNESDAY,FRIDAY)
     Dates: start: 20120423, end: 20120704
  3. ROCALTROL [Concomitant]
     Indication: HYPERPARATHYROIDISM
     Route: 048
     Dates: start: 20060322
  4. CALC ACET [Concomitant]
     Indication: HYPERPHOSPHATAEMIA
     Route: 048
     Dates: start: 20090307
  5. AEROMUC [Concomitant]
     Indication: PRODUCT USED FOR UNKNOWN INDICATION
     Dosage: 1-0-0
  6. RENVELA [Concomitant]
     Indication: PRODUCT USED FOR UNKNOWN INDICATION
     Dosage: 1-1-1
  7. ZEMPLAR [Suspect]
     Indication: HYPERPARATHYROIDISM
     Dosage: 2 X 2 CPS PER WEEK
     Dates: start: 20120206, end: 20120423
  8. CPS [Concomitant]
     Indication: PRODUCT USED FOR UNKNOWN INDICATION
     Dosage: 0-1-0
  9. LASIX [Concomitant]
     Indication: PRODUCT USED FOR UNKNOWN INDICATION
     Route: 048
     Dates: start: 20090307
  10. MAXI KALZ [Concomitant]
     Indication: PRODUCT USED FOR UNKNOWN INDICATION
     Dosage: 1-1-1
  11. FERRLECIT [Concomitant]
     Indication: PRODUCT USED FOR UNKNOWN INDICATION
     Dosage: MONDAY
  12. SEVELAMER HYDROCHLORIDE [Suspect]
     Indication: HYPERPHOSPHATAEMIA
     Route: 048
     Dates: start: 20110307, end: 20120607
  13. CARVEDILOL [Concomitant]
     Indication: CARDIAC FAILURE
     Route: 048
     Dates: start: 20100517
  14. CARVEDILOL [Concomitant]
     Indication: PRODUCT USED FOR UNKNOWN INDICATION
     Dosage: 1-0-1
  15. FOLSAN [Concomitant]
     Indication: PRODUCT USED FOR UNKNOWN INDICATION
     Dosage: 1-0-0
  16. ERYPO [Concomitant]
     Indication: PRODUCT USED FOR UNKNOWN INDICATION
     Dosage: 1000 E ON MONDAYS

REACTIONS (12)
  - EMPHYSEMA [None]
  - BREATH SOUNDS ABNORMAL [None]
  - HYPERPHOSPHATAEMIA [None]
  - ARRHYTHMIA [None]
  - HYPOCALCAEMIA [None]
  - URINARY RETENTION [None]
  - WHEEZING [None]
  - DECREASED APPETITE [None]
  - DYSPNOEA EXERTIONAL [None]
  - DIARRHOEA [None]
  - GENERAL PHYSICAL HEALTH DETERIORATION [None]
  - SPLENIC CALCIFICATION [None]
